FAERS Safety Report 6245228-3 (Version None)
Quarter: 2009Q2

REPORT INFORMATION
  Report Type: 
  Country: None (occurrence: None)
  Receive Date: 20090623
  Receipt Date: 20090623
  Transmission Date: 20091009
  Serious: No
  Sender: FDA-Public Use
  Company Number: None

PATIENT
  Age: 76 Year
  Sex: Male
  Weight: 79.3795 kg

DRUGS (1)
  1. BECONASE AQ [Suspect]
     Dosage: 42 MG DAILY
     Route: 002

REACTIONS (2)
  - AGEUSIA [None]
  - ANOSMIA [None]
